FAERS Safety Report 5315012-3 (Version None)
Quarter: 2007Q2

REPORT INFORMATION
  Report Type: 
  Country: None (occurrence: None)
  Receive Date: 20070502
  Receipt Date: 20070424
  Transmission Date: 20071010
  Serious: Yes (Death)
  Sender: FDA-Public Use
  Company Number: FR-GENENTECH-240577

PATIENT
  Age: 60 Year
  Sex: Female

DRUGS (3)
  1. MABTHERA [Suspect]
     Indication: RHEUMATOID ARTHRITIS
  2. CORTICOSTEROID NOS [Suspect]
     Indication: RHEUMATOID ARTHRITIS
  3. ANTI-INFLAMMATORY NOS [Suspect]
     Indication: RHEUMATOID ARTHRITIS

REACTIONS (2)
  - SEPTIC SHOCK [None]
  - SMALL INTESTINAL PERFORATION [None]
